FAERS Safety Report 5040894-2 (Version None)
Quarter: 2006Q2

REPORT INFORMATION
  Report Type: 
  Country: None (occurrence: None)
  Receive Date: 20060630
  Receipt Date: 20060630
  Transmission Date: 20061013
  Serious: Yes (Other)
  Sender: FDA-Public Use
  Company Number: None

PATIENT
  Sex: Male
  Weight: 80 kg

DRUGS (1)
  1. OMNICEF [Suspect]
     Indication: SINUSITIS
     Dosage: 1 CAPSULE BID PO
     Route: 048
     Dates: start: 20060612, end: 20060622

REACTIONS (1)
  - CLOSTRIDIUM COLITIS [None]
